FAERS Safety Report 9204057 (Version 1)
Quarter: 2013Q2

REPORT INFORMATION
  Report Type: Spontaneous
  Country: IT (occurrence: IT)
  Receive Date: 20130402
  Receipt Date: 20130402
  Transmission Date: 20140414
  Serious: Yes (Hospitalization)
  Sender: FDA-Public Use
  Company Number: IT-PFIZER INC-2013095735

PATIENT
  Age: 79 Year
  Sex: Female
  Weight: 66 kg

DRUGS (2)
  1. CISPLATINO [Suspect]
     Indication: OVARIAN CANCER
     Dosage: 80 MG CYCLICAL (1 CYCLICAL)
     Route: 042
     Dates: start: 20121227, end: 20130318
  2. ANZATAX [Concomitant]
     Indication: OVARIAN CANCER
     Dosage: UNK
     Dates: start: 20121227, end: 20130318

REACTIONS (5)
  - Rash [Recovered/Resolved]
  - Vomiting [Recovered/Resolved]
  - Pruritus [Recovered/Resolved]
  - Band sensation [Recovered/Resolved]
  - Hypotension [Recovered/Resolved]
